FAERS Safety Report 25003239 (Version 2)
Quarter: 2025Q2

REPORT INFORMATION
  Report Type: Spontaneous
  Country: US (occurrence: US)
  Receive Date: 20250224
  Receipt Date: 20250509
  Transmission Date: 20250716
  Serious: Yes (Other)
  Sender: BRISTOL-MYERS SQUIBB COMPANY
  Company Number: US-BRISTOL-MYERS SQUIBB COMPANY-2025-022569

PATIENT
  Age: 69 Year
  Sex: Female

DRUGS (2)
  1. REVLIMID [Suspect]
     Active Substance: LENALIDOMIDE
     Indication: Plasma cell myeloma
     Dosage: 28 DAY CYCLE(21 DAYS ON AND 7 DAYS)
     Dates: start: 20240530
  2. REVLIMID [Suspect]
     Active Substance: LENALIDOMIDE
     Dosage: DRUG SEPARATE DOSAGE NUMBER: 21
     Dates: start: 20250425

REACTIONS (2)
  - Pneumonia [Unknown]
  - Illness [Unknown]

NARRATIVE: CASE EVENT DATE: 20250201
